FAERS Safety Report 6569218-6 (Version None)
Quarter: 2009Q4

REPORT INFORMATION
  Report Type: 
  Country: None (occurrence: None)
  Receive Date: 20091016
  Receipt Date: 20091016
  Transmission Date: 20100525
  Serious: Yes (Hospitalization)
  Sender: FDA-Public Use
  Company Number: None

PATIENT
  Sex: Male

DRUGS (1)
  1. CREST WHITESTRIPS OR CREST WHITESTRIPS CLASSIC [Suspect]
     Dosage: INTRAORAL
     Route: 048

REACTIONS (8)
  - CAUSTIC INJURY [None]
  - DROOLING [None]
  - DYSPHAGIA [None]
  - MOUTH ULCERATION [None]
  - PHARYNGEAL ULCERATION [None]
  - SALIVARY HYPERSECRETION [None]
  - TONGUE ULCERATION [None]
  - TOOTH INJURY [None]
